FAERS Safety Report 25894181 (Version 1)
Quarter: 2025Q4

REPORT INFORMATION
  Report Type: Spontaneous
  Country: US (occurrence: US)
  Receive Date: 20251008
  Receipt Date: 20251008
  Transmission Date: 20260117
  Serious: No
  Sender: Thea Pharma
  Company Number: US-THEA-2025001881

PATIENT
  Sex: Female

DRUGS (1)
  1. IYUZEH [Suspect]
     Active Substance: LATANOPROST
     Indication: Glaucoma
     Dosage: EACH EYE EVERY EVENING AT BEDTIME
     Route: 047
     Dates: start: 2025

REACTIONS (3)
  - Extra dose administered [Unknown]
  - Product complaint [Unknown]
  - Drug ineffective [Unknown]
